FAERS Safety Report 10888753 (Version 3)
Quarter: 2015Q1

REPORT INFORMATION
  Report Type: Spontaneous
  Country: AU (occurrence: AU)
  Receive Date: 20150305
  Receipt Date: 20150309
  Transmission Date: 20150721
  Serious: Yes (Hospitalization, Other)
  Sender: FDA-Public Use
  Company Number: AU-ABBVIE-15K-008-1355668-00

PATIENT
  Age: 47 Year
  Sex: Female

DRUGS (6)
  1. MTX [Suspect]
     Active Substance: METHOTREXATE SODIUM
     Indication: PRODUCT USED FOR UNKNOWN INDICATION
     Route: 058
     Dates: start: 201005, end: 201006
  2. CYCLOSPORIN A [Suspect]
     Active Substance: CYCLOSPORINE
     Indication: PRODUCT USED FOR UNKNOWN INDICATION
     Route: 065
     Dates: start: 2011, end: 2011
  3. MTX [Suspect]
     Active Substance: METHOTREXATE SODIUM
     Route: 058
     Dates: start: 201008, end: 2013
  4. HUMIRA [Suspect]
     Active Substance: ADALIMUMAB
     Indication: PRODUCT USED FOR UNKNOWN INDICATION
     Route: 065
     Dates: start: 201004
  5. MTX [Suspect]
     Active Substance: METHOTREXATE SODIUM
     Route: 058
     Dates: start: 201006, end: 201008
  6. MTX [Suspect]
     Active Substance: METHOTREXATE SODIUM
     Route: 058
     Dates: start: 2013

REACTIONS (25)
  - Abasia [Unknown]
  - Skin disorder [Unknown]
  - Psoriasis [Unknown]
  - Nausea [Unknown]
  - Secretion discharge [Unknown]
  - Eczema [Unknown]
  - Dizziness [Unknown]
  - Skin infection [Unknown]
  - Musculoskeletal stiffness [Unknown]
  - Rash pustular [Unknown]
  - Alopecia [Unknown]
  - Skin plaque [Unknown]
  - Psoriasis [Unknown]
  - Abasia [Unknown]
  - Peripheral swelling [Unknown]
  - Emotional distress [Unknown]
  - Gamma-glutamyltransferase increased [Unknown]
  - Myalgia [Unknown]
  - Skin swelling [Unknown]
  - Arthritis [Unknown]
  - Malaise [Unknown]
  - Pain [Unknown]
  - Hospitalisation [Unknown]
  - Joint swelling [Unknown]
  - Osteoarthritis [Unknown]

NARRATIVE: CASE EVENT DATE: 201005
